FAERS Safety Report 17533801 (Version 1)
Quarter: 2020Q1

REPORT INFORMATION
  Report Type: Spontaneous
  Country: JP (occurrence: JP)
  Receive Date: 20200312
  Receipt Date: 20200312
  Transmission Date: 20200409
  Serious: Yes (Other)
  Sender: FDA-Public Use
  Company Number: JP-009507513-2003JPN004584

PATIENT
  Age: 67 Year
  Sex: Female
  Weight: 39.7 kg

DRUGS (8)
  1. LACTEC [Concomitant]
     Active Substance: CALCIUM CHLORIDE ANHYDROUS\POTASSIUM CHLORIDE\SODIUM CHLORIDE\SODIUM LACTATE
     Indication: FLUID REPLACEMENT
     Dosage: 500 MILLILITER, BID
     Route: 042
     Dates: start: 20191206, end: 20191206
  2. AMLODIPINE [Concomitant]
     Active Substance: AMLODIPINE BESYLATE
     Indication: HYPERTENSION
     Dosage: 2.5 MILLIGRAM, QD
     Route: 048
     Dates: start: 201101, end: 20191206
  3. VITAMEDIN INTRAVENOUS [Concomitant]
     Active Substance: CYANOCOBALAMIN\PYRIDOXINE HYDROCHLORIDE\THIAMINE
     Indication: VITAMIN SUPPLEMENTATION
     Dosage: 1 VIAL, QD
     Route: 042
     Dates: start: 20191206, end: 20191206
  4. MEROPENEM. [Suspect]
     Active Substance: MEROPENEM
     Indication: PYELONEPHRITIS
     Dosage: 1 GRAM, BID
     Route: 042
     Dates: start: 20191206, end: 20191209
  5. BFLUID [Concomitant]
     Active Substance: AMINO ACIDS\DEXTROSE\ELECTROLYTES NOS\VITAMINS
     Indication: FLUID REPLACEMENT
     Dosage: 500 MILLILITER, QD
     Route: 042
     Dates: start: 20191206, end: 20191206
  6. CUBICIN [Suspect]
     Active Substance: DAPTOMYCIN
     Indication: PYELONEPHRITIS
     Dosage: 350 MILLIGRAM, QD
     Route: 042
     Dates: start: 20191206, end: 20191206
  7. TELMISARTAN. [Concomitant]
     Active Substance: TELMISARTAN
     Indication: HYPERTENSION
     Dosage: 20 MILLIGRAM, QD
     Route: 048
     Dates: start: 201101, end: 20191206
  8. SOLITA T-3 [Concomitant]
     Indication: FLUID REPLACEMENT
     Dosage: 500 MILLILITER, QD
     Route: 042
     Dates: start: 20191206, end: 20191206

REACTIONS (1)
  - Dermatitis exfoliative generalised [Unknown]

NARRATIVE: CASE EVENT DATE: 20191206
